FAERS Safety Report 6690438-4 (Version None)
Quarter: 2010Q2

REPORT INFORMATION
  Report Type: 
  Country: None (occurrence: None)
  Receive Date: 20100421
  Receipt Date: 20090415
  Transmission Date: 20101027
  Serious: No
  Sender: FDA-Public Use
  Company Number: US-ASTRAZENECA-2009UW09490

PATIENT
  Age: 85 Year
  Sex: Male
  Weight: 90.7 kg

DRUGS (6)
  1. CASODEX [Suspect]
     Indication: PROSTATE CANCER
     Route: 048
     Dates: start: 20090101
  2. LUPRON [Concomitant]
  3. ATENOLOL [Concomitant]
  4. DILTIAZEM HCL [Concomitant]
  5. LEVOXYL [Concomitant]
  6. PRILOSEC [Concomitant]

REACTIONS (1)
  - NIGHT SWEATS [None]
